FAERS Safety Report 11064694 (Version 2)
Quarter: 2015Q2

REPORT INFORMATION
  Report Type: Report from Study
  Country: DE (occurrence: DE)
  Receive Date: 20150424
  Receipt Date: 20150608
  Transmission Date: 20150821
  Serious: Yes (Hospitalization, Other)
  Sender: FDA-Public Use
  Company Number: DE-ABBVIE-15K-062-1379179-00

PATIENT
  Age: 23 Year
  Sex: Female
  Weight: 56 kg

DRUGS (4)
  1. NOVALGIN [Concomitant]
     Active Substance: METAMIZOLE SODIUM
     Indication: PAIN
     Route: 048
     Dates: start: 20150414
  2. DECORTIN [Concomitant]
     Active Substance: PREDNISONE
     Indication: PRODUCT USED FOR UNKNOWN INDICATION
     Route: 048
     Dates: start: 20150414
  3. TILIDIN COMP [Suspect]
     Active Substance: NALOXONE HYDROCHLORIDE\TILIDINE HYDROCHLORIDE
     Indication: PAIN
     Dosage: 100/8 MG
     Route: 048
     Dates: start: 20141104, end: 20150413
  4. HUMIRA [Suspect]
     Active Substance: ADALIMUMAB
     Indication: CROHN^S DISEASE
     Route: 058
     Dates: start: 20110104

REACTIONS (5)
  - Lupus-like syndrome [Recovered/Resolved]
  - Intestinal stenosis [Recovering/Resolving]
  - Crohn^s disease [Recovering/Resolving]
  - Lupus-like syndrome [Recovering/Resolving]
  - Intestinal stenosis [Recovered/Resolved]

NARRATIVE: CASE EVENT DATE: 201401
